FAERS Safety Report 25526917 (Version 1)
Quarter: 2025Q3

REPORT INFORMATION
  Report Type: Spontaneous
  Country: EU (occurrence: EU)
  Receive Date: 20250707
  Receipt Date: 20250707
  Transmission Date: 20251020
  Serious: Yes (Hospitalization)
  Sender: JOHNSON AND JOHNSON
  Company Number: None

PATIENT
  Age: 74 Year
  Sex: Male

DRUGS (15)
  1. TREMFYA [Suspect]
     Active Substance: GUSELKUMAB
     Indication: Psoriasis
     Route: 050
     Dates: start: 202501
  2. TREMFYA [Suspect]
     Active Substance: GUSELKUMAB
  3. TREMFYA [Suspect]
     Active Substance: GUSELKUMAB
  4. ADCIRCA [Concomitant]
     Active Substance: TADALAFIL
     Indication: Product used for unknown indication
     Dates: start: 2024
  5. BENERVA 300 MG [Concomitant]
     Indication: Product used for unknown indication
     Dates: start: 2024
  6. BOSENTAN SANDOZ 125 MG COMPRIM? PELLICUL? [Concomitant]
     Indication: Product used for unknown indication
     Dates: start: 2024
  7. BURINEX 1 MG COMPRIM? [Concomitant]
     Indication: Product used for unknown indication
     Dates: start: 2024
  8. Dutasteride/Tamsulosine HCl AB 0,5 MG / 0,4 MG [Concomitant]
     Indication: Product used for unknown indication
     Dates: start: 2024
  9. Fluoxone 20 MG [Concomitant]
     Indication: Product used for unknown indication
     Dates: start: 2024
  10. KEPPRA [Concomitant]
     Active Substance: LEVETIRACETAM
     Indication: Product used for unknown indication
     Dates: start: 2024
  11. Nocdurna 50 MICROGRAMMES [Concomitant]
     Indication: Product used for unknown indication
     Dosage: AVANT DE DORMIR
     Dates: start: 2024
  12. VITAMIN D3 [Concomitant]
     Active Substance: CHOLECALCIFEROL
     Indication: Product used for unknown indication
     Dates: start: 2024
  13. Trazodone EG 100 MG [Concomitant]
     Indication: Product used for unknown indication
     Dates: start: 202502
  14. BUDESONIDE\FORMOTEROL\GLYCOPYRRONIUM [Concomitant]
     Active Substance: BUDESONIDE\FORMOTEROL\GLYCOPYRRONIUM
     Indication: Product used for unknown indication
     Dates: start: 202502
  15. ZOCOR 20 MG FILM-COATED TABLET [Concomitant]
     Indication: Product used for unknown indication
     Dates: start: 2024

REACTIONS (7)
  - Alopecia [Not Recovered/Not Resolved]
  - Dyspnoea [Not Recovered/Not Resolved]
  - Wheezing [Not Recovered/Not Resolved]
  - Inflammation [Not Recovered/Not Resolved]
  - Renal failure [Not Recovered/Not Resolved]
  - Respiratory failure [Not Recovered/Not Resolved]
  - Cardiac failure [Not Recovered/Not Resolved]

NARRATIVE: CASE EVENT DATE: 20250301
